FAERS Safety Report 25360722 (Version 2)
Quarter: 2025Q3

REPORT INFORMATION
  Report Type: Spontaneous
  Country: EU (occurrence: EU)
  Receive Date: 20250527
  Receipt Date: 20250811
  Transmission Date: 20251021
  Serious: Yes (Other)
  Sender: BIOVITRUM
  Company Number: EU-BIOVITRUM-2025-FR-007347

PATIENT
  Sex: Female

DRUGS (1)
  1. KINERET [Suspect]
     Active Substance: ANAKINRA
     Indication: Rheumatoid arthritis

REACTIONS (4)
  - Conjunctivitis [Recovered/Resolved]
  - Product temperature excursion issue [Unknown]
  - Angina pectoris [Recovered/Resolved]
  - Alpha 2 globulin increased [Recovered/Resolved]
